FAERS Safety Report 4657581-2 (Version None)
Quarter: 2005Q2

REPORT INFORMATION
  Report Type: 
  Country: None (occurrence: None)
  Receive Date: 20050405
  Receipt Date: 20040218
  Transmission Date: 20051028
  Serious: Yes (Other)
  Sender: FDA-Public Use
  Company Number: 2004011013

PATIENT
  Age: 51 Year
  Sex: Female
  Weight: 90.7194 kg

DRUGS (5)
  1. GEODON [Suspect]
     Indication: PANIC ATTACK
     Dosage: 20 MG (DAILY), ORAL
     Route: 048
     Dates: start: 20030101, end: 20040216
  2. SERTRALINE HYDROCHLORIDE [Concomitant]
  3. CLONAZEPAM [Concomitant]
  4. DYAZIDE [Concomitant]
  5. ASPIRIN [Concomitant]

REACTIONS (5)
  - DISORIENTATION [None]
  - DIZZINESS [None]
  - FEELING JITTERY [None]
  - HEART RATE INCREASED [None]
  - IMPAIRED DRIVING ABILITY [None]
